FAERS Safety Report 6145589-X (Version None)
Quarter: 2009Q2

REPORT INFORMATION
  Report Type: 
  Country: None (occurrence: None)
  Receive Date: 20090407
  Receipt Date: 20090326
  Transmission Date: 20091009
  Serious: Yes (Hospitalization)
  Sender: FDA-Public Use
  Company Number: JP-PFIZER INC-2009166274

PATIENT

DRUGS (5)
  1. ALDACTONE [Suspect]
     Dosage: UNK
     Route: 048
     Dates: end: 20090130
  2. ARTIST [Concomitant]
     Dosage: UNK
     Route: 048
  3. MUCOSTA [Concomitant]
     Dosage: UNK
     Route: 048
  4. DIART [Concomitant]
     Dosage: UNK
     Route: 048
  5. PLETAL [Concomitant]
     Dosage: UNK
     Route: 048

REACTIONS (2)
  - DYSLALIA [None]
  - MYOCLONIC EPILEPSY [None]
